FAERS Safety Report 18361967 (Version 3)
Quarter: 2020Q4

REPORT INFORMATION
  Report Type: Spontaneous
  Country: US (occurrence: US)
  Receive Date: 20201008
  Receipt Date: 20201125
  Transmission Date: 20210114
  Serious: No
  Sender: FDA-Public Use
  Company Number: US-PFIZER INC-2020385585

PATIENT
  Age: 69 Year
  Sex: Female

DRUGS (1)
  1. GENOTROPIN [Suspect]
     Active Substance: SOMATROPIN
     Indication: POSTPARTUM HYPOPITUITARISM
     Dosage: 0.5 MG INJECTION, 1X/DAY IN THE STOMACH
     Dates: end: 20201003

REACTIONS (7)
  - Accidental overdose [Recovered/Resolved]
  - Product use in unapproved indication [Unknown]
  - Feeling hot [Unknown]
  - Device use issue [Unknown]
  - Device information output issue [Recovered/Resolved]
  - Off label use [Unknown]
  - Heart rate increased [Unknown]

NARRATIVE: CASE EVENT DATE: 202010
